FAERS Safety Report 20539010 (Version 2)
Quarter: 2022Q2

REPORT INFORMATION
  Report Type: Spontaneous
  Country: FR (occurrence: FR)
  Receive Date: 20220302
  Receipt Date: 20220502
  Transmission Date: 20220721
  Serious: Yes (Hospitalization)
  Sender: FDA-Public Use
  Company Number: FR-JNJFOC-20210942102

PATIENT
  Age: 73 Year
  Sex: Female
  Weight: 48 kg

DRUGS (7)
  1. YONDELIS [Suspect]
     Active Substance: TRABECTEDIN
     Indication: Ovarian cancer
     Dosage: PAR CURE
     Route: 041
     Dates: start: 20210324, end: 20210618
  2. DOXORUBICIN HYDROCHLORIDE [Suspect]
     Active Substance: DOXORUBICIN HYDROCHLORIDE
     Indication: Ovarian cancer
     Dosage: PAR CURE
     Route: 042
     Dates: start: 20210324, end: 20210618
  3. PEGFILGRASTIM [Suspect]
     Active Substance: PEGFILGRASTIM
     Indication: Neutropenia
     Route: 058
     Dates: start: 20210618
  4. METHYLPREDNISOLONE ACETATE [Suspect]
     Active Substance: METHYLPREDNISOLONE ACETATE
     Indication: Chemotherapy side effect prophylaxis
     Route: 065
     Dates: start: 20210423, end: 20210618
  5. LENOGRASTIM [Suspect]
     Active Substance: LENOGRASTIM
     Indication: Neutropenia
     Route: 058
     Dates: start: 20210525, end: 20210618
  6. ONDANSETRON [Suspect]
     Active Substance: ONDANSETRON
     Indication: Antiemetic supportive care
     Route: 065
     Dates: start: 20210423
  7. VOGALENE [Suspect]
     Active Substance: METOPIMAZINE
     Indication: Antiemetic supportive care
     Route: 048
     Dates: start: 20210423, end: 20210618

REACTIONS (1)
  - Interstitial lung disease [Recovered/Resolved]

NARRATIVE: CASE EVENT DATE: 20210716
